FAERS Safety Report 5753225-7 (Version None)
Quarter: 2008Q2

REPORT INFORMATION
  Report Type: 
  Country: None (occurrence: None)
  Receive Date: 20080527
  Receipt Date: 20080515
  Transmission Date: 20081010
  Serious: Yes (Disabling)
  Sender: FDA-Public Use
  Company Number: 2008AP001226

PATIENT
  Age: 64 Year
  Sex: Female

DRUGS (6)
  1. PRAVASTATIN SODIUM [Suspect]
     Indication: HYPERCHOLESTEROLAEMIA
     Dosage: 20 MG;TAB;PO;HS, 40 MG;TAB;PO;HS
     Route: 048
     Dates: start: 20070801
  2. PRAVASTATIN SODIUM [Suspect]
     Indication: HYPERCHOLESTEROLAEMIA
     Dosage: 20 MG;TAB;PO;HS, 40 MG;TAB;PO;HS
     Route: 048
     Dates: start: 20070801
  3. FELODIPINE [Concomitant]
  4. PERINDOPRIL ERBUMINE (PERINDOPRIL ERBUMINE) [Concomitant]
  5. ALPRAZOLAM [Concomitant]
  6. AMITRIPTLINE HCL [Concomitant]

REACTIONS (2)
  - DIZZINESS [None]
  - MOBILITY DECREASED [None]
